FAERS Safety Report 9832731 (Version 2)
Quarter: 2014Q1

REPORT INFORMATION
  Report Type: Spontaneous
  Country: US (occurrence: US)
  Receive Date: 20140121
  Receipt Date: 20140221
  Transmission Date: 20141002
  Serious: No
  Sender: FDA-Public Use
  Company Number: US-009507513-1401USA009443

PATIENT
  Age: 82 Year
  Sex: Female
  Weight: 70.3 kg

DRUGS (6)
  1. OXYTROL FOR WOMEN [Suspect]
     Indication: HYPERTONIC BLADDER
     Dosage: UNK, UNKNOWN
     Route: 062
     Dates: start: 20140102, end: 20140109
  2. GABAPENTIN [Concomitant]
     Indication: BACK DISORDER
     Dosage: UNK, UNKNOWN
  3. TRAMADOL HYDROCHLORIDE [Concomitant]
     Indication: BACK DISORDER
     Dosage: UNK, UNKNOWN
  4. CALCIUM (UNSPECIFIED) [Concomitant]
     Indication: PRODUCT USED FOR UNKNOWN INDICATION
     Dosage: UNK, UNKNOWN
  5. OMEGA-3 MARINE TRIGLYCERIDES [Concomitant]
     Indication: PRODUCT USED FOR UNKNOWN INDICATION
     Dosage: UNK, UNKNOWN
  6. ONE-A-DAY ESSENTIAL VITAMINS [Concomitant]
     Indication: PRODUCT USED FOR UNKNOWN INDICATION
     Dosage: UNK, UNKNOWN

REACTIONS (3)
  - Application site rash [Recovered/Resolved]
  - Application site erythema [Unknown]
  - Drug ineffective [Unknown]
